FAERS Safety Report 23677362 (Version 1)
Quarter: 2024Q1

REPORT INFORMATION
  Report Type: Spontaneous
  Country: US (occurrence: None)
  Receive Date: 20240326
  Receipt Date: 20240326
  Transmission Date: 20240409
  Serious: Yes (Hospitalization)
  Sender: FDA-Public Use
  Company Number: None

PATIENT
  Sex: Female

DRUGS (5)
  1. LENALIDOMIDE [Suspect]
     Active Substance: LENALIDOMIDE
     Indication: Plasma cell myeloma
     Dosage: OTHER FREQUENCY : SEE EVENT;?
     Route: 048
     Dates: start: 202310
  2. LENALIDOMIDE [Suspect]
     Active Substance: LENALIDOMIDE
     Indication: Plasma cell leukaemia
  3. NIVESTYM [Concomitant]
     Active Substance: FILGRASTIM-AAFI
  4. LENALIDOMIDE [Concomitant]
     Active Substance: LENALIDOMIDE
  5. REVLIVID [Concomitant]

REACTIONS (1)
  - Transplant [None]
